FAERS Safety Report 13592758 (Version 2)
Quarter: 2017Q3

REPORT INFORMATION
  Report Type: Spontaneous
  Country: JP (occurrence: JP)
  Receive Date: 20170530
  Receipt Date: 20170814
  Transmission Date: 20171127
  Serious: Yes (Other)
  Sender: FDA-Public Use
  Company Number: JP-BAYER-2017-095583

PATIENT
  Age: 29 Year
  Sex: Female
  Weight: 53.9 kg

DRUGS (1)
  1. BAYASPIRIN 100 MG [Suspect]
     Active Substance: ASPIRIN
     Indication: ESSENTIAL THROMBOCYTHAEMIA
     Dosage: 100 MG, QD
     Route: 048
     Dates: start: 20160218, end: 20160505

REACTIONS (3)
  - Maternal exposure during pregnancy [None]
  - Foetal death [None]
  - Placental infarction [None]

NARRATIVE: CASE EVENT DATE: 20160218
